FAERS Safety Report 15146476 (Version 6)
Quarter: 2018Q3

REPORT INFORMATION
  Report Type: Spontaneous
  Country: DE (occurrence: DE)
  Receive Date: 20180715
  Receipt Date: 20180724
  Transmission Date: 20181010
  Serious: Yes (Life-Threatening, Hospitalization)
  Sender: FDA-Public Use
  Company Number: PHHY2015DE178056

PATIENT
  Age: 84 Year
  Sex: Female
  Weight: 57 kg

DRUGS (9)
  1. PREDNISOLON [Suspect]
     Active Substance: PREDNISOLONE
     Indication: DIFFUSE LARGE B-CELL LYMPHOMA
     Dosage: 1 OT, Q3W
     Route: 042
     Dates: start: 20151104
  2. VINCRISTINE [Suspect]
     Active Substance: VINCRISTINE
     Indication: DIFFUSE LARGE B-CELL LYMPHOMA
     Dosage: 1 MG, Q3W
     Route: 042
     Dates: start: 20151215
  3. CYCLOPHOSPHAMIDE. [Suspect]
     Active Substance: CYCLOPHOSPHAMIDE
     Indication: DIFFUSE LARGE B-CELL LYMPHOMA
     Dosage: 1260 MG, Q3W
     Route: 042
     Dates: start: 20151215
  4. CYCLOPHOSPHAMIDE. [Suspect]
     Active Substance: CYCLOPHOSPHAMIDE
     Dosage: 1260 MG, Q3W
     Route: 042
     Dates: start: 20160229
  5. VINCRISTINE [Suspect]
     Active Substance: VINCRISTINE
     Dosage: 1 MG, Q3W
     Route: 042
     Dates: start: 20160229
  6. PREDNISOLON [Suspect]
     Active Substance: PREDNISOLONE
     Dosage: 1 OT, Q3W
     Route: 042
     Dates: start: 20160229
  7. DOXORUBICIN [Suspect]
     Active Substance: DOXORUBICIN
     Dosage: 84 MG, Q3W
     Route: 042
     Dates: start: 20160229
  8. DOXORUBICIN [Suspect]
     Active Substance: DOXORUBICIN
     Indication: DIFFUSE LARGE B-CELL LYMPHOMA
     Dosage: 84 MG, Q3W
     Route: 042
     Dates: start: 20151215
  9. RITUXIMAB. [Suspect]
     Active Substance: RITUXIMAB
     Indication: DIFFUSE LARGE B-CELL LYMPHOMA
     Dosage: 1400 MG, Q3W
     Route: 058
     Dates: start: 20151124

REACTIONS (3)
  - Product use in unapproved indication [Unknown]
  - Neutropenia [Recovered/Resolved]
  - Leukopenia [Recovered/Resolved]

NARRATIVE: CASE EVENT DATE: 20151204
